FAERS Safety Report 6806519-8 (Version None)
Quarter: 2010Q2

REPORT INFORMATION
  Report Type: 
  Country: None (occurrence: None)
  Receive Date: 20100629
  Receipt Date: 20080326
  Transmission Date: 20101027
  Serious: No
  Sender: FDA-Public Use
  Company Number: US-PFIZER INC-2008013995

PATIENT
  Sex: Female
  Weight: 101.15 kg

DRUGS (4)
  1. TIKOSYN [Suspect]
     Indication: ATRIAL FIBRILLATION
     Dates: start: 20071027
  2. PLAVIX [Concomitant]
  3. WARFARIN SODIUM [Concomitant]
  4. ALL OTHER THERAPEUTIC PRODUCTS [Concomitant]

REACTIONS (2)
  - ORAL PAIN [None]
  - OROPHARYNGEAL PAIN [None]
